FAERS Safety Report 11386218 (Version 1)
Quarter: 2015Q3

REPORT INFORMATION
  Report Type: Spontaneous
  Country: US (occurrence: None)
  Receive Date: 20150813
  Receipt Date: 20150813
  Transmission Date: 20151125
  Serious: No
  Sender: FDA-Public Use
  Company Number: None

PATIENT
  Age: 34 Year
  Sex: Male
  Weight: 75.75 kg

DRUGS (1)
  1. SUBOXONE [Suspect]
     Active Substance: BUPRENORPHINE HYDROCHLORIDE\NALOXONE HYDROCHLORIDE
     Indication: DRUG THERAPY
     Dosage: SUBOXONE FILMS
     Route: 060
     Dates: start: 20150728

REACTIONS (2)
  - Oral mucosal blistering [None]
  - Lip blister [None]

NARRATIVE: CASE EVENT DATE: 20150514
